FAERS Safety Report 6563881-1 (Version None)
Quarter: 2010Q1

REPORT INFORMATION
  Report Type: 
  Country: None (occurrence: None)
  Receive Date: 20100131
  Receipt Date: 20091229
  Transmission Date: 20100710
  Serious: No
  Sender: FDA-Public Use
  Company Number: US-ABBOTT-10P-163-0617332-00

PATIENT
  Sex: Male
  Weight: 88.984 kg

DRUGS (10)
  1. HUMIRA [Suspect]
     Indication: RHEUMATOID ARTHRITIS
     Route: 058
     Dates: start: 20090901
  2. LOVAZA [Concomitant]
     Indication: SUPPLEMENTATION THERAPY
     Route: 048
  3. FLAXSEED OIL [Concomitant]
     Indication: SUPPLEMENTATION THERAPY
     Route: 048
  4. POTASSIUM [Concomitant]
     Indication: MUSCLE SPASMS
     Route: 048
  5. POTASSIUM [Concomitant]
     Indication: SUPPLEMENTATION THERAPY
  6. CYCLOBENZAPRINE [Concomitant]
     Indication: MUSCLE SPASMS
     Route: 048
  7. GABAPENTIN [Concomitant]
     Indication: SCIATICA
     Route: 048
  8. UNKNOWN GERMAN TOPICAL [Concomitant]
     Indication: PSORIASIS
     Route: 061
  9. BETAMETHASONE [Concomitant]
     Indication: PSORIASIS
     Route: 061
  10. TRIAMCINOLONE ACETONIDE [Concomitant]
     Indication: PSORIASIS
     Route: 061

REACTIONS (5)
  - ARTHRALGIA [None]
  - DIARRHOEA [None]
  - ERUCTATION [None]
  - NAUSEA [None]
  - VOMITING [None]
